FAERS Safety Report 5997349-8 (Version None)
Quarter: 2008Q4

REPORT INFORMATION
  Report Type: 
  Country: None (occurrence: None)
  Receive Date: 20081210
  Receipt Date: 20081126
  Transmission Date: 20090506
  Serious: Yes (Other)
  Sender: FDA-Public Use
  Company Number: B0549314A

PATIENT
  Age: 3 Day
  Sex: Male

DRUGS (1)
  1. PAROXETINE HYDROCHLORIDE (FORMULATION UNKNOWN) (GENERIC) [Suspect]
     Indication: DEPRESSION
     Dosage: 20 MG / PER DAY / TRANSPLACENTARY
     Route: 064

REACTIONS (3)
  - BLOOD POTASSIUM INCREASED [None]
  - ELECTROCARDIOGRAM QT PROLONGED [None]
  - MATERNAL DRUGS AFFECTING FOETUS [None]
